FAERS Safety Report 10583628 (Version 1)
Quarter: 2014Q4

REPORT INFORMATION
  Report Type: Spontaneous
  Country: US (occurrence: None)
  Receive Date: 20141112
  Receipt Date: 20141112
  Transmission Date: 20150529
  Serious: Yes (Other)
  Sender: FDA-Public Use
  Company Number: 201410190

PATIENT
  Sex: Male

DRUGS (1)
  1. TESTIM [Suspect]
     Active Substance: TESTOSTERONE
     Indication: HYPOGONADISM
     Route: 062
     Dates: start: 2011, end: 2013

REACTIONS (7)
  - Quality of life decreased [None]
  - Emotional disorder [None]
  - Unevaluable event [None]
  - Economic problem [None]
  - Injury [None]
  - Family stress [None]
  - Cerebrovascular accident [None]
